FAERS Safety Report 8211681-9 (Version None)
Quarter: 2012Q1

REPORT INFORMATION
  Report Type: 
  Country: None (occurrence: None)
  Receive Date: 20120315
  Receipt Date: 20120307
  Transmission Date: 20120608
  Serious: Yes (Other)
  Sender: FDA-Public Use
  Company Number: US-JNJFOC-20110807766

PATIENT
  Sex: Male

DRUGS (31)
  1. ASPIRIN [Concomitant]
     Indication: CARDIOVASCULAR EVENT PROPHYLAXIS
     Route: 048
     Dates: start: 20000101
  2. TORSEMIDE [Concomitant]
     Indication: DIURETIC THERAPY
     Route: 048
     Dates: start: 20000901, end: 20100128
  3. TORSEMIDE [Concomitant]
     Indication: HYPERTENSION
     Route: 048
     Dates: start: 20100305, end: 20101230
  4. TORSEMIDE [Concomitant]
     Route: 048
     Dates: start: 20000901, end: 20100128
  5. ABIRATERONE ACETATE [Suspect]
     Route: 048
  6. AVAPRO [Concomitant]
     Dosage: EVERY MORNING
     Route: 048
     Dates: start: 20020101
  7. LANTUS [Concomitant]
     Indication: DIABETES MELLITUS
     Route: 058
     Dates: start: 20070801
  8. FLOMAX [Concomitant]
     Indication: URINARY TRACT DISORDER
     Route: 048
     Dates: start: 20091130
  9. CARTIA XT [Concomitant]
     Indication: HYPERTENSION
     Route: 048
     Dates: start: 20010701
  10. CLARINEX [Concomitant]
     Indication: MULTIPLE ALLERGIES
     Route: 048
     Dates: start: 20060401
  11. SINGULAIR [Concomitant]
     Indication: MULTIPLE ALLERGIES
     Route: 048
     Dates: start: 20060401
  12. VANTAS [Concomitant]
     Route: 065
     Dates: start: 20090716
  13. TETRACYCLINE [Concomitant]
     Indication: ROSACEA
     Route: 048
     Dates: start: 19970131
  14. VANTAS [Concomitant]
     Indication: HORMONE THERAPY
     Route: 065
     Dates: start: 20061001
  15. COREG [Concomitant]
     Indication: CORONARY ARTERY DISEASE
     Route: 048
     Dates: start: 20050901
  16. COREG [Concomitant]
     Route: 048
     Dates: start: 20050901
  17. NOVOLOG [Concomitant]
     Dosage: EVERY MORNING
     Route: 058
     Dates: start: 20070801
  18. PLAVIX [Concomitant]
     Indication: ARTERIOSCLEROSIS
     Route: 048
     Dates: start: 20000901
  19. TORSEMIDE [Concomitant]
     Route: 048
     Dates: start: 20101230, end: 20110811
  20. TORSEMIDE [Concomitant]
     Route: 048
     Dates: start: 20100128, end: 20100305
  21. VANTAS [Concomitant]
     Route: 065
     Dates: start: 20090716
  22. CALTRATE + D [Concomitant]
     Indication: PROPHYLAXIS
     Route: 048
     Dates: start: 20100128
  23. AVAPRO [Concomitant]
     Indication: HYPERTENSION
     Dosage: EVERY MORNING
     Route: 048
     Dates: start: 20020101
  24. NOVOLOG [Concomitant]
     Indication: DIABETES MELLITUS
     Dosage: EVERY MORNING
     Route: 058
     Dates: start: 20070801
  25. SIMCOR [Concomitant]
     Indication: HYPERLIPIDAEMIA
     Route: 048
     Dates: start: 20080801
  26. TORSEMIDE [Concomitant]
     Route: 048
     Dates: start: 20101230, end: 20110811
  27. TORSEMIDE [Concomitant]
     Route: 048
     Dates: start: 20100128, end: 20100305
  28. TORSEMIDE [Concomitant]
     Route: 048
     Dates: start: 20100305, end: 20101230
  29. ABIRATERONE ACETATE [Suspect]
     Indication: PROSTATE CANCER METASTATIC
     Route: 048
     Dates: start: 20090716, end: 20110815
  30. PREDNISONE TAB [Suspect]
     Indication: PROSTATE CANCER METASTATIC
     Route: 048
     Dates: start: 20090716
  31. VANTAS [Concomitant]
     Indication: CANCER HORMONAL THERAPY
     Route: 065
     Dates: start: 20061001

REACTIONS (1)
  - HYPERURICAEMIA [None]
